FAERS Safety Report 22038824 (Version 1)
Quarter: 2023Q1

REPORT INFORMATION
  Report Type: Spontaneous
  Country: IT (occurrence: IT)
  Receive Date: 20230227
  Receipt Date: 20230227
  Transmission Date: 20230418
  Serious: Yes (Life-Threatening)
  Sender: FDA-Public Use
  Company Number: None

PATIENT
  Age: 50 Year
  Sex: Male
  Weight: 110 kg

DRUGS (3)
  1. CISPLATIN [Suspect]
     Active Substance: CISPLATIN
     Indication: Pancreatic carcinoma metastatic
     Dosage: 30MG/M2 (60MG) IN PHYSIOLOGICAL SALINE 250 CC INFUSED AT A RATE OF
     Dates: start: 20220714, end: 20230202
  2. ABRAXANE [Concomitant]
     Active Substance: PACLITAXEL
     Indication: Pancreatic carcinoma metastatic
     Dosage: 150 MG/M2 EVERY 14 DAYS IN A CYCLE OF 28
     Dates: start: 20220714, end: 20230202
  3. GEMCITABINE HYDROCHLORIDE [Concomitant]
     Active Substance: GEMCITABINE HYDROCHLORIDE
     Indication: Pancreatic carcinoma metastatic
     Dosage: 800MG/M2 EVERY 14 DAYS IN A 28 DAY CYCLE
     Dates: start: 20220714, end: 20230202

REACTIONS (8)
  - Dyspnoea [Recovered/Resolved]
  - Abdominal pain [Recovered/Resolved]
  - Venous oxygen saturation decreased [Recovered/Resolved]
  - Erythema [Recovered/Resolved]
  - Penile oedema [Recovered/Resolved]
  - Anaphylactic reaction [Recovered/Resolved]
  - Angioedema [Recovered/Resolved]
  - Chest pain [Recovered/Resolved]

NARRATIVE: CASE EVENT DATE: 20230202
